FAERS Safety Report 5676240-0 (Version None)
Quarter: 2008Q1

REPORT INFORMATION
  Report Type: 
  Country: None (occurrence: None)
  Receive Date: 20080321
  Receipt Date: 20080312
  Transmission Date: 20080703
  Serious: Yes (Disabling)
  Sender: FDA-Public Use
  Company Number: US-SANOFI-SYNTHELABO-A03200602091

PATIENT
  Sex: Female
  Weight: 90.7 kg

DRUGS (34)
  1. AMBIEN [Suspect]
     Indication: INSOMNIA
     Dosage: TAKES 1 1/2 TABLETS OF 10 MG
     Route: 048
     Dates: start: 19990101, end: 20060516
  2. CYMBALTA [Concomitant]
     Indication: DRUG USE FOR UNKNOWN INDICATION
     Route: 048
  3. PROVIGIL [Concomitant]
     Indication: DRUG USE FOR UNKNOWN INDICATION
     Dosage: 100 MG EVERY MORNING
     Route: 065
  4. VIVELLE-DOT [Concomitant]
     Indication: DRUG USE FOR UNKNOWN INDICATION
     Dosage: 0.075 MG PATCH Q2WKS
     Route: 061
  5. GLUCOSAMINE CHONDROITIN [Concomitant]
     Indication: OSTEOARTHRITIS
     Dosage: UNK
     Route: 048
     Dates: start: 20060806
  6. NEXIUM [Concomitant]
     Indication: DRUG USE FOR UNKNOWN INDICATION
     Dosage: 40 MG EVERY MORNING IN THE MORNING
     Route: 048
     Dates: start: 20070717
  7. PROMETRIUM [Concomitant]
     Indication: DRUG USE FOR UNKNOWN INDICATION
     Route: 048
  8. TRICOR [Concomitant]
     Indication: HYPERTRIGLYCERIDAEMIA
     Dosage: UNK
     Route: 048
  9. PROTONIX [Concomitant]
     Indication: GASTROOESOPHAGEAL REFLUX DISEASE
     Dosage: UNK
     Route: 048
     Dates: start: 20070709
  10. HYDROCHLOROTHIAZIDE [Concomitant]
     Indication: DRUG USE FOR UNKNOWN INDICATION
     Route: 048
     Dates: start: 20061110
  11. NAPROSYN [Concomitant]
     Indication: DRUG USE FOR UNKNOWN INDICATION
     Route: 048
     Dates: start: 20061006
  12. ATENOLOL [Concomitant]
     Indication: HYPERTENSION
     Route: 048
  13. CLONIDINE [Concomitant]
     Indication: DRUG USE FOR UNKNOWN INDICATION
     Route: 061
     Dates: end: 20060901
  14. LYRICA [Concomitant]
     Indication: PAIN
     Dosage: UNK
     Route: 048
  15. MOBIC [Concomitant]
     Indication: PAIN
     Route: 048
     Dates: end: 20061006
  16. MOBIC [Concomitant]
     Indication: FIBROMYALGIA
     Route: 048
     Dates: end: 20061006
  17. REQUIP [Concomitant]
     Indication: RESTLESS LEGS SYNDROME
     Route: 048
  18. ATENOLOL [Concomitant]
     Route: 048
  19. ATENOLOL [Concomitant]
     Route: 048
  20. ASTELIN [Concomitant]
     Indication: SINUSITIS
     Route: 045
  21. ASTELIN [Concomitant]
     Indication: RHINITIS ALLERGIC
     Route: 045
  22. CLARINEX [Concomitant]
     Indication: SINUSITIS
     Route: 048
     Dates: start: 20060516
  23. CALCIUM VITAMIN D [Concomitant]
     Indication: DRUG USE FOR UNKNOWN INDICATION
     Dosage: UNK
     Route: 048
  24. SINGULAIR [Concomitant]
     Indication: RHINITIS ALLERGIC
     Route: 048
  25. PATANOL [Concomitant]
     Indication: DRUG USE FOR UNKNOWN INDICATION
     Route: 047
  26. RHINOCORT [Concomitant]
     Indication: DRUG USE FOR UNKNOWN INDICATION
     Dosage: UNK
     Route: 065
  27. NASACORT AQ [Concomitant]
     Indication: RHINITIS ALLERGIC
     Dosage: UNK
     Route: 045
  28. LORTAB [Concomitant]
     Indication: FIBROMYALGIA
     Dosage: 10/500 MG EVERY 4 HOURS AS NEEDED
     Route: 048
  29. LEXAPRO [Concomitant]
     Indication: DEPRESSION
     Dosage: UNK
     Route: 048
     Dates: start: 20071102
  30. PREMARIN [Concomitant]
     Indication: DRUG USE FOR UNKNOWN INDICATION
     Route: 048
  31. PREMARIN [Concomitant]
     Dosage: 0.0425 MG
     Route: 048
  32. KLONOPIN [Concomitant]
     Indication: RESTLESS LEGS SYNDROME
     Route: 048
  33. ZYRTEC [Concomitant]
     Indication: DRUG USE FOR UNKNOWN INDICATION
     Route: 048
  34. MACROBID [Concomitant]
     Indication: DRUG USE FOR UNKNOWN INDICATION
     Route: 048

REACTIONS (27)
  - AMNESIA [None]
  - ARTHRALGIA [None]
  - BACK PAIN [None]
  - BURSITIS [None]
  - DEPENDENCE [None]
  - DRUG ABUSE [None]
  - DRUG INEFFECTIVE [None]
  - DRUG WITHDRAWAL SYNDROME [None]
  - EATING DISORDER [None]
  - FALL [None]
  - FATIGUE [None]
  - GAIT DISTURBANCE [None]
  - HALLUCINATION [None]
  - IMPAIRED DRIVING ABILITY [None]
  - INTENTIONAL DRUG MISUSE [None]
  - MENISCUS LESION [None]
  - MUSCLE INJURY [None]
  - MUSCLE SPASMS [None]
  - OEDEMA PERIPHERAL [None]
  - PAIN [None]
  - SKELETAL INJURY [None]
  - SLEEP TALKING [None]
  - SOMNAMBULISM [None]
  - SOMNOLENCE [None]
  - TENDON INJURY [None]
  - TENDONITIS [None]
  - WEIGHT INCREASED [None]
